FAERS Safety Report 13931345 (Version 1)
Quarter: 2017Q3

REPORT INFORMATION
  Report Type: Spontaneous
  Country: JP (occurrence: JP)
  Receive Date: 20170903
  Receipt Date: 20170903
  Transmission Date: 20171127
  Serious: Yes (Death)
  Sender: FDA-Public Use
  Company Number: JP-MITSUBISHI TANABE PHARMA CORPORATION-MTPC2017-0018504

PATIENT
  Sex: Female

DRUGS (1)
  1. RADICUT [Suspect]
     Active Substance: EDARAVONE
     Route: 042

REACTIONS (1)
  - Respiratory failure [Fatal]
